FAERS Safety Report 9656017 (Version 2)
Quarter: 2014Q1

REPORT INFORMATION
  Report Type: Report from Study
  Country: BR (occurrence: BR)
  Receive Date: 20131030
  Receipt Date: 20140120
  Transmission Date: 20141002
  Serious: Yes (Hospitalization)
  Sender: FDA-Public Use
  Company Number: BR-ROCHE-1294083

PATIENT
  Sex: Female
  Weight: 55 kg

DRUGS (8)
  1. ACTEMRA [Suspect]
     Indication: RHEUMATOID ARTHRITIS
     Dosage: DATE OF LAST INFUSION: 06/JAN/2014
     Route: 065
     Dates: start: 20130902
  2. PURAN T4 [Concomitant]
     Route: 065
  3. OMEPRAZOLE [Concomitant]
     Route: 065
  4. GLIMEPIRIDE [Concomitant]
     Route: 065
  5. METHOTREXATE [Concomitant]
     Route: 065
  6. CHLORTHALIDONE [Concomitant]
     Route: 065
  7. AMLODIPINE [Concomitant]
     Route: 065
  8. ENALAPRIL [Concomitant]
     Route: 065

REACTIONS (4)
  - Pneumonia [Recovered/Resolved]
  - Hypoglycaemia [Recovered/Resolved]
  - Syncope [Recovered/Resolved]
  - Immunodeficiency [Recovered/Resolved]
